APPROVED DRUG PRODUCT: LANORINAL
Active Ingredient: ASPIRIN; BUTALBITAL; CAFFEINE
Strength: 325MG;50MG;40MG
Dosage Form/Route: TABLET;ORAL
Application: A086986 | Product #002
Applicant: LANNETT CO INC
Approved: Oct 18, 1985 | RLD: No | RS: No | Type: DISCN